FAERS Safety Report 7710479-5 (Version None)
Quarter: 2011Q3

REPORT INFORMATION
  Report Type: 
  Country: None (occurrence: None)
  Receive Date: 20110825
  Receipt Date: 20110815
  Transmission Date: 20111222
  Serious: No
  Sender: FDA-Public Use
  Company Number: US-B.I. PHARMACEUTICALS,INC./RIDGEFIELD-2011-BP-18411BP

PATIENT
  Sex: Female

DRUGS (3)
  1. LEVOXYL [Concomitant]
     Indication: HYPOTHYROIDISM
     Dates: start: 19820101
  2. ZANTAC 75 [Suspect]
     Indication: GASTROOESOPHAGEAL REFLUX DISEASE
     Dosage: 75 MG
     Route: 048
     Dates: start: 20110717, end: 20110720
  3. ZANTAC 75 [Suspect]

REACTIONS (2)
  - RASH MACULAR [None]
  - EPHELIDES [None]
